FAERS Safety Report 4586364-7 (Version None)
Quarter: 2005Q1

REPORT INFORMATION
  Report Type: 
  Country: None (occurrence: None)
  Receive Date: 20050125
  Receipt Date: 20040907
  Transmission Date: 20050727
  Serious: No
  Sender: FDA-Public Use
  Company Number: USA040977456

PATIENT
  Age: 78 Year
  Sex: Female
  Weight: 60 kg

DRUGS (3)
  1. FORTEO [Suspect]
     Indication: BONE DENSITY DECREASED
     Dosage: 20 UG/1 DAY
     Dates: start: 20040805
  2. FORTEO [Suspect]
     Indication: FRACTURE
     Dosage: 20 UG/1 DAY
     Dates: start: 20040805
  3. PREDNISONE [Concomitant]

REACTIONS (3)
  - INJECTION [None]
  - INJECTION SITE ERYTHEMA [None]
  - INJECTION SITE HAEMORRHAGE [None]
